FAERS Safety Report 9033166 (Version 2)
Quarter: 2013Q4

REPORT INFORMATION
  Report Type: Report from Study
  Country: US (occurrence: US)
  Receive Date: 20130128
  Receipt Date: 20131030
  Transmission Date: 20140711
  Serious: Yes (Hospitalization)
  Sender: FDA-Public Use
  Company Number: US-ROCHE-1182593

PATIENT
  Age: 56 Year
  Sex: Male
  Weight: 84.81 kg

DRUGS (10)
  1. RITUXIMAB [Suspect]
     Indication: CHRONIC LYMPHOCYTIC LEUKAEMIA
     Route: 042
     Dates: start: 20120803, end: 20120815
  2. METFORMIN [Concomitant]
     Route: 065
     Dates: start: 20120814
  3. ACYCLOVIR [Concomitant]
     Route: 065
     Dates: start: 20120814
  4. ENALAPRIL [Concomitant]
     Route: 065
     Dates: start: 20120814
  5. ALLOPURINOL [Concomitant]
  6. ZOSYN [Concomitant]
     Route: 065
     Dates: end: 20120829
  7. CIPRO [Concomitant]
  8. CEFEPIME [Concomitant]
  9. BACTRIM [Concomitant]
     Route: 065
     Dates: start: 20120814
  10. PLACEBO [Suspect]
     Indication: CHRONIC LYMPHOCYTIC LEUKAEMIA
     Route: 048
     Dates: start: 20120803, end: 20120814

REACTIONS (2)
  - Hypercalcaemia [Recovered/Resolved]
  - Blood creatinine increased [Recovered/Resolved]
